FAERS Safety Report 8975046 (Version 1)
Quarter: 2012Q4

REPORT INFORMATION
  Report Type: 
  Country: US (occurrence: US)
  Receive Date: 20121220
  Receipt Date: 20121220
  Transmission Date: 20130627
  Serious: Yes (Other)
  Sender: FDA-Public Use
  Company Number: US-ELI_LILLY_AND_COMPANY-US201212003182

PATIENT
  Sex: Female

DRUGS (2)
  1. FORTEO [Suspect]
     Indication: OSTEOPOROSIS
     Dosage: 20 ug, qd
     Dates: start: 201208
  2. FORTEO [Suspect]
     Dosage: 20 ug, qd
     Dates: end: 20121207

REACTIONS (16)
  - Cardiac failure [Recovered/Resolved]
  - Ventricular tachycardia [Recovered/Resolved]
  - Wheezing [Recovered/Resolved]
  - Gait disturbance [Recovered/Resolved]
  - Pain in extremity [Recovered/Resolved]
  - Blood pressure increased [Recovered/Resolved]
  - Blood pressure inadequately controlled [Recovered/Resolved]
  - Blood pressure fluctuation [Recovered/Resolved]
  - Headache [Recovered/Resolved]
  - Back pain [Recovered/Resolved]
  - Nausea [Recovered/Resolved]
  - Arthralgia [Recovered/Resolved]
  - Bone pain [Recovered/Resolved]
  - Feeling abnormal [Recovered/Resolved]
  - Drug hypersensitivity [Unknown]
  - Back pain [Unknown]
